FAERS Safety Report 24831604 (Version 2)
Quarter: 2025Q1

REPORT INFORMATION
  Report Type: Spontaneous
  Country: US (occurrence: US)
  Receive Date: 20250110
  Receipt Date: 20250124
  Transmission Date: 20250409
  Serious: No
  Sender: VIIV
  Company Number: US-VIIV HEALTHCARE-US2025001919

PATIENT
  Age: 46 Year
  Sex: Male

DRUGS (3)
  1. CABENUVA [Suspect]
     Active Substance: CABOTEGRAVIR\RILPIVIRINE
     Indication: HIV carrier
     Dosage: UNK UNK, MO, SINGLE-DOSE VIAL OF 600-MG/900MG
  2. CABENUVA [Suspect]
     Active Substance: CABOTEGRAVIR\RILPIVIRINE
     Dosage: UNK UNK, Q2M, SINGLE-DOSE VIAL OF 600-MG/900MG
  3. CABENUVA [Suspect]
     Active Substance: CABOTEGRAVIR\RILPIVIRINE

REACTIONS (1)
  - Product dose omission issue [Unknown]

NARRATIVE: CASE EVENT DATE: 20241116
